FAERS Safety Report 5941896-1 (Version None)
Quarter: 2008Q4

REPORT INFORMATION
  Report Type: 
  Country: None (occurrence: None)
  Receive Date: 20081031
  Receipt Date: 20081023
  Transmission Date: 20090506
  Serious: Yes (Hospitalization)
  Sender: FDA-Public Use
  Company Number: US024542

PATIENT
  Age: 69 Year
  Sex: Male
  Weight: 106.6 kg

DRUGS (17)
  1. ARSENIC TRIOXIDE [Suspect]
     Indication: MYELODYSPLASTIC SYNDROME
     Dosage: 0.1 MG/KG DAYS 1-5 CYCLE 1 QD INTRAVENOUS
     Route: 042
     Dates: start: 20080804, end: 20080808
  2. ARSENIC TRIOXIDE [Suspect]
     Indication: MYELODYSPLASTIC SYNDROME
     Dosage: 0.1 MG/KG DAY 8 CYCLE 1 QD INTRAVENOUS
     Route: 042
     Dates: start: 20080811, end: 20080811
  3. ARSENIC TRIOXIDE [Suspect]
     Indication: MYELODYSPLASTIC SYNDROME
     Dosage: 0.1 MG/KG DAY 15 CYCLE 1 QD INTRAVENOUS
     Route: 042
     Dates: start: 20080818, end: 20080818
  4. ARSENIC TRIOXIDE [Suspect]
     Indication: MYELODYSPLASTIC SYNDROME
     Dosage: 0.1 MG/KG DAY 22 CYCLE 1 QD INTRAVENOUS
     Route: 042
     Dates: start: 20080825, end: 20080825
  5. ARSENIC TRIOXIDE [Suspect]
     Indication: MYELODYSPLASTIC SYNDROME
     Dosage: 0.1 MG/KG DAY1 CYCLE  2 QD INTRAVENOUS
     Route: 042
     Dates: start: 20080908
  6. DECITABINE [Suspect]
     Indication: MYELODYSPLASTIC SYNDROME
     Dosage: 20 MG/M2  DAYS 1-5 CYCLE 1 QD
     Dates: start: 20080804, end: 20080808
  7. DECITABINE [Suspect]
     Indication: MYELODYSPLASTIC SYNDROME
     Dosage: 20 MG/M2  DAY 1 CYCLE  2 QD
     Dates: start: 20080902, end: 20080902
  8. DECITABINE [Suspect]
     Indication: MYELODYSPLASTIC SYNDROME
     Dosage: 20 MG/M2  DAYS 1-5 CYCLE  2  QD
     Dates: start: 20080908
  9. ASCORBIC ACID [Suspect]
     Indication: MYELODYSPLASTIC SYNDROME
     Dosage: 100 MG  DAYS 1-5 CYCLE 1 QD
     Dates: start: 20080804, end: 20080808
  10. ASCORBIC ACID [Suspect]
     Indication: MYELODYSPLASTIC SYNDROME
     Dosage: 100 MG  DAY 8  CYCLE 1 QD
     Dates: start: 20080811, end: 20080811
  11. ASCORBIC ACID [Suspect]
     Indication: MYELODYSPLASTIC SYNDROME
     Dosage: 100 MG  DAY  15 CYCLE 1 QD
     Dates: start: 20080818, end: 20080818
  12. ASCORBIC ACID [Suspect]
     Indication: MYELODYSPLASTIC SYNDROME
     Dosage: 100 MG  DAY 22 CYCLE 1 QD
     Dates: start: 20080825, end: 20080825
  13. ASCORBIC ACID [Suspect]
     Indication: MYELODYSPLASTIC SYNDROME
     Dosage: 100 MG  DAY 1 CYCLE 2 QD
     Dates: start: 20080908
  14. NEXIUM [Concomitant]
  15. PAXIL [Concomitant]
  16. GLYBURIDE [Concomitant]
  17. ACYCLOVIR [Concomitant]

REACTIONS (1)
  - ANAPHYLACTIC REACTION [None]
